FAERS Safety Report 10167411 (Version 2)
Quarter: 2014Q2

REPORT INFORMATION
  Report Type: Spontaneous
  Country: FR (occurrence: FR)
  Receive Date: 20140512
  Receipt Date: 20140519
  Transmission Date: 20141212
  Serious: Yes (Hospitalization)
  Sender: FDA-Public Use
  Company Number: FR-PFIZER INC-2014123807

PATIENT
  Sex: Female

DRUGS (1)
  1. ADVILMED ENFANTS ET NOURRISSONS [Suspect]
     Indication: MASTOIDITIS
     Dosage: UNK

REACTIONS (2)
  - Drug ineffective for unapproved indication [Unknown]
  - Impaired healing [Unknown]
